FAERS Safety Report 6930567-0 (Version None)
Quarter: 2010Q3

REPORT INFORMATION
  Report Type: 
  Country: None (occurrence: None)
  Receive Date: 20100818
  Receipt Date: 20100812
  Transmission Date: 20110219
  Serious: Yes (Other)
  Sender: FDA-Public Use
  Company Number: B0669698A

PATIENT
  Sex: Female

DRUGS (1)
  1. AUGMENTIN '125' [Suspect]
     Dosage: 1G SINGLE DOSE
     Route: 048
     Dates: start: 20100701, end: 20100701

REACTIONS (3)
  - ARTHRALGIA [None]
  - PURPURA [None]
  - VASCULITIS [None]
